FAERS Safety Report 16555796 (Version 1)
Quarter: 2019Q3

REPORT INFORMATION
  Report Type: Spontaneous
  Country: GB (occurrence: GB)
  Receive Date: 20190710
  Receipt Date: 20190710
  Transmission Date: 20191004
  Serious: Yes (Other)
  Sender: FDA-Public Use
  Company Number: GB-MYLANLABS-2019M1063632

PATIENT
  Age: 57 Year
  Sex: Male
  Weight: 54 kg

DRUGS (10)
  1. LOSARTAN. [Concomitant]
     Active Substance: LOSARTAN
     Dosage: 1 DOSAGE FORM, QD
     Dates: start: 20180522
  2. FULTIUM D3 [Concomitant]
     Active Substance: CHOLECALCIFEROL
     Dosage: 1 DOSAGE FORM, QD
     Dates: start: 20180522
  3. TAPENTADOL [Concomitant]
     Active Substance: TAPENTADOL
     Dosage: 100MG IN THE MORNING, 50MG IN AFTERNOON AND 50MG TO BE TA...
     Dates: start: 20180522
  4. CLOPIDOGREL [Concomitant]
     Active Substance: CLOPIDOGREL BISULFATE
     Dosage: 1 DOSAGE FORM, QD
     Dates: start: 20180522
  5. LEVETIRACETAM. [Concomitant]
     Active Substance: LEVETIRACETAM
     Dosage: 0.5 DOSAGE FORM, QD
     Dates: start: 20180809, end: 20190114
  6. AMLODIPINE [Suspect]
     Active Substance: AMLODIPINE BESYLATE
     Indication: PRODUCT USED FOR UNKNOWN INDICATION
     Dosage: 5 MILLIGRAM
     Dates: start: 20180521
  7. PYRIDOXINE [Concomitant]
     Active Substance: PYRIDOXINE
     Dosage: 1 DOSAGE FORM, QD
     Dates: start: 20180629
  8. BRIVARACETAM [Concomitant]
     Active Substance: BRIVARACETAM
     Dosage: TO BE TAKEN EACH NIGHT FOR ONE MONTH AND THEN...
     Dates: start: 20190115
  9. ATORVASTATIN [Concomitant]
     Active Substance: ATORVASTATIN
     Dosage: 2 DOSAGE FORM, QD
     Dates: start: 20180522
  10. TEMAZEPAM. [Concomitant]
     Active Substance: TEMAZEPAM
     Dosage: 1 DOAGE FORM AT NIGHT
     Dates: start: 20180522

REACTIONS (5)
  - Disorientation [Unknown]
  - Abdominal distension [Unknown]
  - Dizziness [Unknown]
  - Abdominal pain lower [Unknown]
  - Drug hypersensitivity [Unknown]
